FAERS Safety Report 12957570 (Version 1)
Quarter: 2016Q4

REPORT INFORMATION
  Report Type: Spontaneous
  Country: JP (occurrence: JP)
  Receive Date: 20161118
  Receipt Date: 20161118
  Transmission Date: 20170207
  Serious: Yes (Other)
  Sender: FDA-Public Use
  Company Number: JP-PFIZER INC-2016425137

PATIENT
  Age: 17 Year
  Sex: Male
  Weight: 95 kg

DRUGS (2)
  1. DOGMATIL [Concomitant]
     Active Substance: SULPIRIDE
     Dosage: 50 MG, 1X/DAY
     Route: 048
     Dates: start: 20150207, end: 20160903
  2. EFFEXOR [Suspect]
     Active Substance: VENLAFAXINE HYDROCHLORIDE
     Indication: DEPRESSION
     Dosage: 37.5 MG, 1X/DAY
     Dates: start: 20160526, end: 20160903

REACTIONS (2)
  - Blood creatine phosphokinase increased [Recovered/Resolved]
  - Hepatic function abnormal [Unknown]

NARRATIVE: CASE EVENT DATE: 20160903
